FAERS Safety Report 11127045 (Version 1)
Quarter: 2015Q2

REPORT INFORMATION
  Report Type: Spontaneous
  Country: CN (occurrence: CN)
  Receive Date: 20150521
  Receipt Date: 20150521
  Transmission Date: 20150821
  Serious: Yes (Other)
  Sender: FDA-Public Use
  Company Number: CN-ROCHE-1579779

PATIENT
  Age: 48 Year
  Sex: Female
  Weight: 56 kg

DRUGS (2)
  1. MABTHERA [Suspect]
     Active Substance: RITUXIMAB
     Indication: DIFFUSE LARGE B-CELL LYMPHOMA
     Route: 041
     Dates: start: 20141206, end: 20141206
  2. SODIUM CHLORIDE. [Concomitant]
     Active Substance: SODIUM CHLORIDE
     Indication: DIFFUSE LARGE B-CELL LYMPHOMA
     Route: 041
     Dates: start: 20141206, end: 20141206

REACTIONS (15)
  - Feeling cold [Recovering/Resolving]
  - Orthostatic hypotension [Unknown]
  - Arrhythmia [Unknown]
  - Diarrhoea [Unknown]
  - Decreased appetite [Unknown]
  - Infusion site pain [Unknown]
  - Pallor [Recovering/Resolving]
  - Tachycardia [Unknown]
  - Abdominal pain [Recovering/Resolving]
  - Hypertension [Unknown]
  - Dyspepsia [Unknown]
  - Bradycardia [Unknown]
  - Pain [Unknown]
  - Abdominal distension [Unknown]
  - Heart rate decreased [Recovering/Resolving]

NARRATIVE: CASE EVENT DATE: 20141206
